FAERS Safety Report 9068794 (Version 1)
Quarter: 2013Q1

REPORT INFORMATION
  Report Type: Other
  Country: US (occurrence: US)
  Receive Date: 20130215
  Receipt Date: 20130215
  Transmission Date: 20140127
  Serious: Yes (Death, Hospitalization)
  Sender: FDA-Public Use
  Company Number: US-BANPHARM-20130738

PATIENT
  Age: 33 Year
  Sex: Female

DRUGS (3)
  1. AMANTADINE [Suspect]
     Dosage: 62.5 G
     Route: 048
  2. DIAZEPAM [Suspect]
     Dosage: 15 MG
     Route: 048
  3. CLONAZEPAM [Suspect]
     Dosage: 1.5 MG
     Route: 048

REACTIONS (10)
  - Completed suicide [Fatal]
  - Disorientation [Fatal]
  - Ventricular tachycardia [Fatal]
  - Convulsion [Fatal]
  - Cardiac arrest [Fatal]
  - Confusional state [Fatal]
  - Hallucination [Fatal]
  - Hypoxia [Fatal]
  - Acute respiratory distress syndrome [Fatal]
  - Septic shock [Fatal]
